FAERS Safety Report 8318531-0 (Version None)
Quarter: 2012Q2

REPORT INFORMATION
  Report Type: 
  Country: None (occurrence: None)
  Receive Date: 20120427
  Receipt Date: 20120419
  Transmission Date: 20120825
  Serious: Yes (Other)
  Sender: FDA-Public Use
  Company Number: ES-GLAXOSMITHKLINE-B0798060A

PATIENT
  Age: 80 Year
  Sex: Female

DRUGS (6)
  1. ATROVENT [Suspect]
     Indication: PRODUCT USED FOR UNKNOWN INDICATION
     Route: 055
     Dates: start: 20070101
  2. VENTOLIN [Suspect]
     Indication: PRODUCT USED FOR UNKNOWN INDICATION
     Route: 055
     Dates: start: 20070101
  3. FLUTICASONE PROPIONATE/SALMETEROL [Concomitant]
  4. LUMIGAN [Concomitant]
  5. INSULATARD NPH HUMAN [Concomitant]
  6. TRUSOPT [Concomitant]

REACTIONS (1)
  - GLAUCOMA [None]
